FAERS Safety Report 20981444 (Version 2)
Quarter: 2022Q3

REPORT INFORMATION
  Report Type: Report from Study
  Country: ES (occurrence: ES)
  Receive Date: 20220620
  Receipt Date: 20220705
  Transmission Date: 20221026
  Serious: Yes (Death, Hospitalization)
  Sender: FDA-Public Use
  Company Number: ES-ABBVIE-22K-144-4436907-00

PATIENT
  Sex: Male
  Weight: 79 kg

DRUGS (2)
  1. CARBIDOPA\LEVODOPA [Suspect]
     Active Substance: CARBIDOPA\LEVODOPA
     Indication: Parkinson^s disease
     Dosage: STRENGTH: 20 MG/ML, 5 MG/ML
     Route: 050
     Dates: start: 20171026
  2. CARBIDOPA\LEVODOPA [Suspect]
     Active Substance: CARBIDOPA\LEVODOPA

REACTIONS (3)
  - COVID-19 pneumonia [Fatal]
  - Disorientation [Unknown]
  - Agitation [Unknown]

NARRATIVE: CASE EVENT DATE: 20220101
